FAERS Safety Report 9160334 (Version 4)
Quarter: 2013Q3

REPORT INFORMATION
  Report Type: Spontaneous
  Country: IL (occurrence: IL)
  Receive Date: 20130313
  Receipt Date: 20130701
  Transmission Date: 20140515
  Serious: Yes (Death, Hospitalization, Other)
  Sender: FDA-Public Use
  Company Number: IL-SANOFI-AVENTIS-2013SA021464

PATIENT
  Age: 49 Year
  Sex: Female

DRUGS (3)
  1. TAXOTERE [Suspect]
     Indication: BREAST CANCER METASTATIC
     Route: 065
  2. HERCEPTIN [Suspect]
     Indication: BREAST CANCER METASTATIC
     Route: 042
  3. PERJETA [Suspect]
     Indication: BREAST CANCER METASTATIC
     Route: 042

REACTIONS (9)
  - Papilloedema [Recovered/Resolved]
  - Diplopia [Recovered/Resolved]
  - Bacterial infection [Fatal]
  - Pancytopenia [Unknown]
  - Neutropenia [Unknown]
  - Diarrhoea [Unknown]
  - Metastases to meninges [Unknown]
  - Headache [Recovered/Resolved]
  - Asthenia [Recovered/Resolved]
